FAERS Safety Report 9717529 (Version 1)
Quarter: 2013Q4

REPORT INFORMATION
  Report Type: Spontaneous
  Country: US (occurrence: US)
  Receive Date: 20131127
  Receipt Date: 20131127
  Transmission Date: 20140711
  Serious: No
  Sender: FDA-Public Use
  Company Number: US-GILEAD-2009-0020511

PATIENT
  Age: 53 Year
  Sex: Female
  Weight: 67.58 kg

DRUGS (10)
  1. LETAIRIS [Suspect]
     Indication: PULMONARY ARTERIAL HYPERTENSION
     Route: 048
  2. REVATIO [Concomitant]
  3. SINGULAIR [Concomitant]
  4. ZYRTEC [Concomitant]
  5. PROVENTIL [Concomitant]
  6. NASONEX [Concomitant]
  7. LASIX [Concomitant]
  8. K-DUR [Concomitant]
  9. ATACAND [Concomitant]
  10. NEXIUM [Concomitant]

REACTIONS (1)
  - Nasal congestion [Not Recovered/Not Resolved]
